FAERS Safety Report 25007475 (Version 2)
Quarter: 2025Q1

REPORT INFORMATION
  Report Type: Spontaneous
  Country: HR (occurrence: HR)
  Receive Date: 20250225
  Receipt Date: 20250307
  Transmission Date: 20250409
  Serious: Yes (Hospitalization)
  Sender: TEVA
  Company Number: HR-TEVA-VS-3302380

PATIENT
  Age: 69 Year
  Sex: Female

DRUGS (5)
  1. PIRFENIDONE [Suspect]
     Active Substance: PIRFENIDONE
     Indication: Idiopathic pulmonary fibrosis
     Route: 065
     Dates: start: 202008
  2. EZETIMIBE [Concomitant]
     Active Substance: EZETIMIBE
     Indication: Product used for unknown indication
  3. NEBIVOLOL [Concomitant]
     Active Substance: NEBIVOLOL
     Indication: Product used for unknown indication
  4. VALSARTAN [Concomitant]
     Active Substance: VALSARTAN
     Indication: Product used for unknown indication
  5. HYDROCHLOROTHIAZIDE [Concomitant]
     Active Substance: HYDROCHLOROTHIAZIDE
     Indication: Product used for unknown indication

REACTIONS (1)
  - Lichen planus [Recovering/Resolving]

NARRATIVE: CASE EVENT DATE: 20210701
